FAERS Safety Report 18150210 (Version 1)
Quarter: 2020Q3

REPORT INFORMATION
  Report Type: Spontaneous
  Country: US (occurrence: US)
  Receive Date: 20200814
  Receipt Date: 20200814
  Transmission Date: 20201103
  Serious: No
  Sender: FDA-Public Use
  Company Number: US-GLAXOSMITHKLINE-US2020159447

PATIENT
  Sex: Male

DRUGS (2)
  1. VOLTAREN EMULGEL [Concomitant]
     Active Substance: DICLOFENAC DIETHYLAMINE
     Indication: PRODUCT USED FOR UNKNOWN INDICATION
     Dosage: UNK
  2. VOLTAREN ARTHRITIS PAIN [Suspect]
     Active Substance: DICLOFENAC SODIUM
     Indication: EPICONDYLITIS
     Dosage: UNK, 3 TO 4 TIMES
     Dates: start: 202007

REACTIONS (5)
  - Rash [Unknown]
  - Blister [Unknown]
  - Product use issue [Unknown]
  - Product use in unapproved indication [Unknown]
  - Dermatitis atopic [Unknown]
